FAERS Safety Report 25241116 (Version 3)
Quarter: 2025Q2

REPORT INFORMATION
  Report Type: Spontaneous
  Country: DE (occurrence: DE)
  Receive Date: 20250425
  Receipt Date: 20250515
  Transmission Date: 20250717
  Serious: Yes (Other)
  Sender: ALEXION PHARMACEUTICALS
  Company Number: DE-002147023-NVSC2024DE136266

PATIENT
  Weight: 63 kg

DRUGS (21)
  1. FULVESTRANT [Suspect]
     Active Substance: FULVESTRANT
     Indication: Product used for unknown indication
  2. FULVESTRANT [Suspect]
     Active Substance: FULVESTRANT
  3. KISQALI [Suspect]
     Active Substance: RIBOCICLIB SUCCINATE
     Indication: Breast cancer
     Dosage: 600 MG, QD
  4. KISQALI [Suspect]
     Active Substance: RIBOCICLIB SUCCINATE
     Indication: Metastasis
     Route: 065
  5. KISQALI [Suspect]
     Active Substance: RIBOCICLIB SUCCINATE
     Indication: Metastases to liver
  6. KISQALI [Suspect]
     Active Substance: RIBOCICLIB SUCCINATE
     Indication: Metastases to bone
     Route: 065
  7. KISQALI [Suspect]
     Active Substance: RIBOCICLIB SUCCINATE
     Dosage: 600 MG, QD
  8. KISQALI [Suspect]
     Active Substance: RIBOCICLIB SUCCINATE
  9. KISQALI [Suspect]
     Active Substance: RIBOCICLIB SUCCINATE
  10. KISQALI [Suspect]
     Active Substance: RIBOCICLIB SUCCINATE
     Dosage: 600 MG, QD
  11. KISQALI [Suspect]
     Active Substance: RIBOCICLIB SUCCINATE
  12. KISQALI [Suspect]
     Active Substance: RIBOCICLIB SUCCINATE
     Dosage: 600 MG, QD
  13. KISQALI [Suspect]
     Active Substance: RIBOCICLIB SUCCINATE
  14. XGEVA [Suspect]
     Active Substance: DENOSUMAB
     Indication: Product used for unknown indication
  15. ATORVASTATIN [Concomitant]
     Active Substance: ATORVASTATIN
     Indication: Hypercholesterolaemia
     Dosage: 20 MG (IN THE EVENINGS)
  16. OPIPRAMOL [Concomitant]
     Active Substance: OPIPRAMOL
     Indication: Antidepressant therapy
     Dosage: 50 MG (IN THE EVENINGS)
  17. LEVOTHYROXINE SODIUM [Concomitant]
     Active Substance: LEVOTHYROXINE SODIUM
     Indication: Hypothyroidism
     Dosage: 50 UG (IN THE MORNINGS)
  18. DENOSUMAB [Concomitant]
     Active Substance: DENOSUMAB
     Indication: Product used for unknown indication
     Route: 065
  19. DENOSUMAB [Concomitant]
     Active Substance: DENOSUMAB
     Route: 065
  20. DENOSUMAB [Concomitant]
     Active Substance: DENOSUMAB
     Route: 065
  21. Vigantol [Concomitant]
     Indication: Product used for unknown indication
     Route: 065

REACTIONS (6)
  - Leukopenia [Recovering/Resolving]
  - Carcinoembryonic antigen increased [Unknown]
  - Pruritus [Recovering/Resolving]
  - Carbohydrate antigen 15-3 increased [Unknown]
  - Transaminases increased [Recovered/Resolved]
  - Liver function test increased [Unknown]
